FAERS Safety Report 5868522-4 (Version None)
Quarter: 2008Q3

REPORT INFORMATION
  Report Type: 
  Country: None (occurrence: None)
  Receive Date: 20080902
  Receipt Date: 20080902
  Transmission Date: 20090109
  Serious: Yes (Life-Threatening)
  Sender: FDA-Public Use
  Company Number: None

PATIENT
  Age: 56 Year
  Sex: Female
  Weight: 44.9061 kg

DRUGS (2)
  1. CYMBALTA [Suspect]
     Indication: ANXIETY
     Dosage: 60 MG DAILY PO
     Route: 048
     Dates: start: 20060401, end: 20080830
  2. CYMBALTA [Suspect]
     Indication: DEPRESSION
     Dosage: 60 MG DAILY PO
     Route: 048
     Dates: start: 20060401, end: 20080830

REACTIONS (20)
  - ABNORMAL BEHAVIOUR [None]
  - APATHY [None]
  - CONDITION AGGRAVATED [None]
  - CONFUSIONAL STATE [None]
  - CONSTIPATION [None]
  - CRYING [None]
  - DEPRESSION [None]
  - DISTURBANCE IN ATTENTION [None]
  - EMOTIONAL DISORDER [None]
  - EUPHORIC MOOD [None]
  - FEELING ABNORMAL [None]
  - INSOMNIA [None]
  - INTENTIONAL SELF-INJURY [None]
  - MEMORY IMPAIRMENT [None]
  - PANIC REACTION [None]
  - PARAESTHESIA [None]
  - SOCIAL AVOIDANT BEHAVIOUR [None]
  - SUICIDAL BEHAVIOUR [None]
  - SUICIDAL IDEATION [None]
  - WITHDRAWAL SYNDROME [None]
